FAERS Safety Report 8910072 (Version 1)
Quarter: 2012Q4

REPORT INFORMATION
  Report Type: 
  Country: FR (occurrence: FR)
  Receive Date: 20121115
  Receipt Date: 20121115
  Transmission Date: 20130627
  Serious: Yes (Hospitalization, Other)
  Sender: FDA-Public Use
  Company Number: FR-JNJFOC-20121100969

PATIENT
  Age: 68 Year
  Sex: Female
  Weight: 80 kg

DRUGS (8)
  1. XARELTO [Suspect]
     Indication: EMBOLISM VENOUS
     Route: 048
  2. XARELTO [Suspect]
     Indication: EMBOLISM VENOUS
     Route: 048
     Dates: start: 20121002, end: 20121009
  3. XARELTO [Suspect]
     Indication: PULMONARY EMBOLISM
     Route: 048
  4. XARELTO [Suspect]
     Indication: PULMONARY EMBOLISM
     Route: 048
     Dates: start: 20121002, end: 20121009
  5. STABLON [Concomitant]
     Route: 065
  6. LEXOMIL [Concomitant]
     Route: 065
  7. INDAPAMIDE PERINDOPRIL [Concomitant]
     Route: 065
  8. NEBILOX [Concomitant]
     Route: 065

REACTIONS (1)
  - Headache [Recovering/Resolving]
